FAERS Safety Report 9748182 (Version 1)
Quarter: 2013Q4

REPORT INFORMATION
  Report Type: Spontaneous
  Country: US (occurrence: None)
  Receive Date: 20131206
  Receipt Date: 20131206
  Transmission Date: 20140711
  Serious: Yes (Hospitalization, Other)
  Sender: FDA-Public Use
  Company Number: 2013-US-003838

PATIENT
  Age: 34 Year
  Sex: Female

DRUGS (2)
  1. XYREM (SODIUM OXYBATE) ORAL SOLUTION, 500MG/ML [Suspect]
     Route: 048
     Dates: start: 200303, end: 2003
  2. TYLENOL (PARACETAMOL) [Suspect]
     Indication: PRODUCT USED FOR UNKNOWN INDICATION

REACTIONS (3)
  - Acute hepatic failure [None]
  - Overdose [None]
  - Psychotic disorder [None]
